FAERS Safety Report 12490402 (Version 1)
Quarter: 2016Q2

REPORT INFORMATION
  Report Type: Report from Study
  Country: PH (occurrence: PH)
  Receive Date: 20160622
  Receipt Date: 20160622
  Transmission Date: 20160815
  Serious: Yes (Death)
  Sender: FDA-Public Use
  Company Number: PHHY2016PH083761

PATIENT
  Age: 32 Year
  Sex: Male

DRUGS (1)
  1. TASIGNA [Suspect]
     Active Substance: NILOTINIB
     Indication: PRODUCT USED FOR UNKNOWN INDICATION
     Dosage: 800 MG, UNK
     Route: 048
     Dates: start: 201405, end: 201505

REACTIONS (3)
  - Cerebral haemorrhage [Fatal]
  - Chronic myeloid leukaemia [Fatal]
  - Headache [Fatal]

NARRATIVE: CASE EVENT DATE: 201604
